FAERS Safety Report 19468047 (Version 1)
Quarter: 2021Q2

REPORT INFORMATION
  Report Type: Report from Study
  Country: IT (occurrence: IT)
  Receive Date: 20210628
  Receipt Date: 20210628
  Transmission Date: 20210717
  Serious: Yes (Hospitalization)
  Sender: FDA-Public Use
  Company Number: IT-ACCORD-229695

PATIENT
  Age: 61 Year
  Sex: Male

DRUGS (8)
  1. LUVION [Concomitant]
  2. LOPRESOR [Concomitant]
     Active Substance: METOPROLOL
     Dosage: STRENGTH: 100 MG
  3. COUMADIN [Concomitant]
     Active Substance: WARFARIN SODIUM
  4. ISOPTIN [Concomitant]
     Active Substance: VERAPAMIL HYDROCHLORIDE
     Dosage: STRENGTH: 40 MG
  5. TAREG [Concomitant]
     Active Substance: VALSARTAN
     Dosage: STRENGTH: 80 MG
  6. ZYLORIC [Concomitant]
     Active Substance: ALLOPURINOL
     Dosage: STRENGTH: 300 MG
  7. FUROSEMIDE. [Suspect]
     Active Substance: FUROSEMIDE
     Indication: PRODUCT USED FOR UNKNOWN INDICATION
     Route: 048
     Dates: start: 20210101, end: 20210416
  8. TORVAST [Concomitant]
     Active Substance: ATORVASTATIN
     Dosage: STRENGTH: 40 MG

REACTIONS (1)
  - Dehydration [Not Recovered/Not Resolved]

NARRATIVE: CASE EVENT DATE: 20210416
